FAERS Safety Report 6596915-9 (Version None)
Quarter: 2010Q1

REPORT INFORMATION
  Report Type: 
  Country: None (occurrence: None)
  Receive Date: 20100222
  Receipt Date: 20100222
  Transmission Date: 20100710
  Serious: No
  Sender: FDA-Public Use
  Company Number: None

PATIENT
  Age: 77 Year
  Sex: Male
  Weight: 70.7611 kg

DRUGS (2)
  1. KETOCONAZOLE [Suspect]
     Indication: ERYTHEMA
     Dosage: ABOUT 1/2^ OR LESS OF CREAM ONCE DAILY
     Dates: start: 20100122, end: 20100211
  2. KETOCONAZOLE [Suspect]
     Indication: SKIN IRRITATION
     Dosage: ABOUT 1/2^ OR LESS OF CREAM ONCE DAILY
     Dates: start: 20100122, end: 20100211

REACTIONS (4)
  - ARTHRALGIA [None]
  - BLISTER [None]
  - MYALGIA [None]
  - PAIN IN EXTREMITY [None]
